FAERS Safety Report 9853696 (Version 1)
Quarter: 2014Q1

REPORT INFORMATION
  Report Type: Spontaneous
  Country: US (occurrence: US)
  Receive Date: 20140129
  Receipt Date: 20140129
  Transmission Date: 20141002
  Serious: No
  Sender: FDA-Public Use
  Company Number: US-GLAXOSMITHKLINE-A1007689A

PATIENT
  Age: 72 Year
  Sex: Female

DRUGS (16)
  1. WELLBUTRIN [Suspect]
     Indication: PRODUCT USED FOR UNKNOWN INDICATION
     Route: 048
  2. PAXIL [Suspect]
     Indication: PRODUCT USED FOR UNKNOWN INDICATION
     Route: 065
  3. LAMICTAL [Suspect]
     Indication: DEPRESSION
     Dosage: 25MG SEE DOSAGE TEXT
     Route: 048
     Dates: start: 20121103
  4. LEXAPRO [Suspect]
  5. SIMVASTATIN [Concomitant]
  6. IRON SUPPLEMENT [Concomitant]
  7. UNKNOWN DRUG [Concomitant]
  8. CAL-MAG [Concomitant]
  9. UNKNOWN DRUG [Concomitant]
  10. VITAMIN D3 [Concomitant]
  11. ESTER-C [Concomitant]
  12. METHYLFOLATE [Concomitant]
  13. TOCOPHEROL [Concomitant]
  14. UNKNOWN DRUG [Concomitant]
  15. MELATONIN [Concomitant]
  16. SYNTHROID [Concomitant]

REACTIONS (7)
  - Drug ineffective [Not Recovered/Not Resolved]
  - Therapeutic response decreased [Unknown]
  - Influenza like illness [Unknown]
  - Fatigue [Unknown]
  - Fatigue [Unknown]
  - Depression [Unknown]
  - Drug interaction [Unknown]
